FAERS Safety Report 9698292 (Version 2)
Quarter: 2014Q1

REPORT INFORMATION
  Report Type: Spontaneous
  Country: GB (occurrence: GB)
  Receive Date: 20131120
  Receipt Date: 20140210
  Transmission Date: 20141002
  Serious: Yes (Other)
  Sender: FDA-Public Use
  Company Number: GB-WATSON-2013-21271

PATIENT
  Age: 48 Year
  Sex: Female
  Weight: 80 kg

DRUGS (2)
  1. FENTANYL (UNKNOWN) [Suspect]
     Indication: ANALGESIC THERAPY
     Dosage: 200 ?G, UNKNOWN
     Route: 042
     Dates: start: 20131023, end: 20131023
  2. NARATRIPTAN [Concomitant]
     Indication: MIGRAINE
     Dosage: UNK
     Route: 065

REACTIONS (3)
  - Serotonin syndrome [Recovered/Resolved]
  - Hypertension [Recovered/Resolved]
  - Tachycardia [Recovered/Resolved]
